FAERS Safety Report 17281155 (Version 2)
Quarter: 2020Q1

REPORT INFORMATION
  Report Type: Report from Study
  Country: US (occurrence: US)
  Receive Date: 20200117
  Receipt Date: 20200122
  Transmission Date: 20200409
  Serious: Yes (Hospitalization, Other)
  Sender: FDA-Public Use
  Company Number: US-ROCHE-2349304

PATIENT
  Age: 58 Year
  Sex: Female
  Weight: 86.26 kg

DRUGS (9)
  1. OCREVUS [Suspect]
     Active Substance: OCRELIZUMAB
     Indication: RELAPSING-REMITTING MULTIPLE SCLEROSIS
  2. TRAMADOL. [Suspect]
     Active Substance: TRAMADOL
     Indication: PAIN
     Dosage: UNKNOWN FREQUENCY AND INTERVAL ;ONGOING: YES
     Route: 065
     Dates: start: 2019, end: 2019
  3. BENADRYL [Concomitant]
     Active Substance: DIPHENHYDRAMINE HYDROCHLORIDE
     Indication: RASH
  4. PERCOCET [Concomitant]
     Active Substance: ACETAMINOPHEN\OXYCODONE HYDROCHLORIDE
     Indication: PAIN
     Route: 065
     Dates: start: 2019
  5. OXYBUTIN [Concomitant]
     Active Substance: OXYBUTYNIN
     Dosage: INDICATION: URINE FEELS LIKE HAS TO COME OUT AGAIN
     Route: 065
  6. BENADRYL [Concomitant]
     Active Substance: DIPHENHYDRAMINE HYDROCHLORIDE
     Indication: PREMEDICATION
     Route: 065
     Dates: start: 20181220
  7. BACLOFEN. [Concomitant]
     Active Substance: BACLOFEN
     Dosage: 10 MG IN AM AND NIGHTTIME AND 20 MG IN AFTERNOON
     Route: 065
  8. TRAMADOL. [Suspect]
     Active Substance: TRAMADOL
     Indication: TREMOR
  9. OCREVUS [Suspect]
     Active Substance: OCRELIZUMAB
     Indication: PROGRESSIVE MULTIPLE SCLEROSIS
     Dosage: NEXT INFUSION: 16/JUL/2019, 30/SEP/2019
     Route: 042
     Dates: start: 20181220

REACTIONS (33)
  - Palpitations [Not Recovered/Not Resolved]
  - Headache [Recovering/Resolving]
  - Chest pain [Not Recovered/Not Resolved]
  - Multiple sclerosis relapse [Recovered/Resolved]
  - Depression [Unknown]
  - Throat irritation [Unknown]
  - Road traffic accident [Unknown]
  - Feeling abnormal [Not Recovered/Not Resolved]
  - Weight increased [Not Recovered/Not Resolved]
  - Arthritis [Not Recovered/Not Resolved]
  - Disturbance in attention [Unknown]
  - Erythema [Unknown]
  - Pharyngeal swelling [Unknown]
  - Dizziness [Unknown]
  - Pyrexia [Recovered/Resolved]
  - Abdominal pain upper [Unknown]
  - Pain [Not Recovered/Not Resolved]
  - Dysphemia [Not Recovered/Not Resolved]
  - Asthenia [Unknown]
  - Burning sensation [Not Recovered/Not Resolved]
  - Fatigue [Unknown]
  - Cough [Recovered/Resolved]
  - Fibromyalgia [Not Recovered/Not Resolved]
  - Paraesthesia [Not Recovered/Not Resolved]
  - Tremor [Recovered/Resolved]
  - Pruritus [Unknown]
  - Depression [Not Recovered/Not Resolved]
  - Condition aggravated [Not Recovered/Not Resolved]
  - Chest discomfort [Unknown]
  - Sensory disturbance [Unknown]
  - Hypoaesthesia [Unknown]
  - Hypertension [Unknown]
  - Nausea [Not Recovered/Not Resolved]

NARRATIVE: CASE EVENT DATE: 20181220
